FAERS Safety Report 5499661-8 (Version None)
Quarter: 2007Q4

REPORT INFORMATION
  Report Type: 
  Country: None (occurrence: None)
  Receive Date: 20071026
  Receipt Date: 20071015
  Transmission Date: 20080405
  Serious: Yes (Hospitalization)
  Sender: FDA-Public Use
  Company Number: GB-PFIZER INC-2007078944

PATIENT
  Age: 20 Year
  Sex: Female

DRUGS (4)
  1. AZITHROMYCIN [Suspect]
     Route: 042
  2. CEFTAZIDIME [Suspect]
     Route: 042
  3. COLOMYCIN [Suspect]
     Dosage: TEXT:2MIU
     Route: 042
     Dates: start: 20001201, end: 20010101
  4. TOBRAMYCIN [Suspect]
     Route: 042
     Dates: start: 20001201, end: 20010101

REACTIONS (12)
  - ARTHRALGIA [None]
  - BLOOD CREATININE INCREASED [None]
  - BLOOD PRESSURE INCREASED [None]
  - BLOOD UREA INCREASED [None]
  - CREATININE RENAL CLEARANCE DECREASED [None]
  - DIZZINESS [None]
  - DRUG INTERACTION [None]
  - EOSINOPHILIA [None]
  - HAEMATURIA [None]
  - HEADACHE [None]
  - NAUSEA [None]
  - RENAL FAILURE ACUTE [None]
